FAERS Safety Report 7536942-8 (Version None)
Quarter: 2011Q2

REPORT INFORMATION
  Report Type: 
  Country: None (occurrence: None)
  Receive Date: 20110609
  Receipt Date: 20110531
  Transmission Date: 20111010
  Serious: Yes (Hospitalization, Other)
  Sender: FDA-Public Use
  Company Number: GB-ASTRAZENECA-2011SE30906

PATIENT
  Age: 54 Year
  Sex: Male
  Weight: 69 kg

DRUGS (7)
  1. LANSOPRAZOLE [Concomitant]
     Indication: DEPRESSION
     Route: 048
     Dates: start: 20051001
  2. SEROQUEL [Suspect]
     Indication: PSYCHOTIC DISORDER
     Route: 048
  3. SEROQUEL [Suspect]
     Route: 048
  4. SEROQUEL [Suspect]
     Route: 048
  5. SEROQUEL [Suspect]
     Route: 048
  6. PAROXETINE HCL [Concomitant]
     Indication: DEPRESSION
     Route: 048
     Dates: start: 20051001
  7. SEROQUEL [Suspect]
     Route: 048

REACTIONS (5)
  - MANIA [None]
  - SYNCOPE [None]
  - HYPOTENSION [None]
  - DRUG DOSE OMISSION [None]
  - LOSS OF CONSCIOUSNESS [None]
